FAERS Safety Report 9704790 (Version 1)
Quarter: 2013Q4

REPORT INFORMATION
  Report Type: Spontaneous
  Country: US (occurrence: US)
  Receive Date: 20131122
  Receipt Date: 20131122
  Transmission Date: 20140711
  Serious: No
  Sender: FDA-Public Use
  Company Number: US-BAYER-2013-143114

PATIENT
  Age: 78 Year
  Sex: Male
  Weight: 79 kg

DRUGS (4)
  1. ALEVE TABLET [Suspect]
     Dosage: 3 DF, UNK
     Route: 048
     Dates: start: 20131120, end: 20131120
  2. RYTHMOL [Concomitant]
  3. PRILOSEC [Concomitant]
  4. HYZAAR [Concomitant]
     Dosage: UNK

REACTIONS (1)
  - Incorrect dose administered [None]
